FAERS Safety Report 8781704 (Version 1)
Quarter: 2012Q4

REPORT INFORMATION
  Report Type: Report from Study
  Country: US (occurrence: US)
  Receive Date: 20120913
  Receipt Date: 20120913
  Transmission Date: 20130627
  Serious: No
  Sender: FDA-Public Use
  Company Number: US-VERTEX PHARMACEUTICAL INC.-AE-2012-006629

PATIENT
  Age: 23 None
  Sex: Female

DRUGS (4)
  1. VX-950 [Suspect]
     Indication: HEPATITIS C
     Dosage: UNK
     Route: 048
     Dates: start: 20120409, end: 20120702
  2. PEGASYS [Concomitant]
     Indication: HEPATITIS C
     Dosage: UNK
     Dates: start: 20120409
  3. RIBAVIRIN [Concomitant]
     Indication: HEPATITIS C
     Dosage: 1000 mg, qd
     Dates: start: 20120409
  4. RIBAVIRIN [Concomitant]
     Dosage: 600 mg, qd

REACTIONS (8)
  - Dyspnoea [Unknown]
  - Anxiety [Not Recovered/Not Resolved]
  - Decreased appetite [Unknown]
  - Alopecia [Not Recovered/Not Resolved]
  - Dry skin [Not Recovered/Not Resolved]
  - Fatigue [Not Recovered/Not Resolved]
  - Anaemia [Not Recovered/Not Resolved]
  - Pruritus [Not Recovered/Not Resolved]
